FAERS Safety Report 25763770 (Version 1)
Quarter: 2025Q3

REPORT INFORMATION
  Report Type: Spontaneous
  Country: US (occurrence: US)
  Receive Date: 20250905
  Receipt Date: 20250905
  Transmission Date: 20251021
  Serious: No
  Sender: DOMPE FARMACEUTICI
  Company Number: US-FARMAPROD-202411-3817

PATIENT
  Age: 51 Year
  Sex: Female

DRUGS (5)
  1. OXERVATE [Suspect]
     Active Substance: CENEGERMIN-BKBJ
     Indication: Neurotrophic keratopathy
     Route: 047
     Dates: start: 20241030
  2. OXERVATE [Suspect]
     Active Substance: CENEGERMIN-BKBJ
  3. HUMAN SERUM, NORMAL [Concomitant]
     Active Substance: HUMAN SERUM, NORMAL
  4. MIEBO [Concomitant]
     Active Substance: PERFLUOROHEXYLOCTANE
  5. REFRESH EYE ALLERGY RELIEF [Concomitant]

REACTIONS (6)
  - Eye pain [Unknown]
  - Eye irritation [Unknown]
  - Lacrimation increased [Unknown]
  - Photophobia [Unknown]
  - Ocular discomfort [Unknown]
  - Hordeolum [Unknown]

NARRATIVE: CASE EVENT DATE: 20241117
